FAERS Safety Report 6887254-7 (Version None)
Quarter: 2010Q3

REPORT INFORMATION
  Report Type: 
  Country: None (occurrence: None)
  Receive Date: 20100730
  Receipt Date: 20100618
  Transmission Date: 20110219
  Serious: No
  Sender: FDA-Public Use
  Company Number: A0866103A

PATIENT
  Age: 75 Year
  Sex: Female

DRUGS (10)
  1. FLOVENT [Suspect]
     Indication: ASTHMA
     Dosage: 2PUFF TWICE PER DAY
     Route: 055
     Dates: start: 20100201
  2. ATENOLOL [Concomitant]
  3. ENALAPRIL [Concomitant]
  4. LASIX [Concomitant]
  5. CRESTOR [Concomitant]
  6. FOLIC ACID [Concomitant]
  7. ASCRIPTIN [Concomitant]
  8. SEREVENT [Concomitant]
  9. VITAMIN D [Concomitant]
  10. CENTRUM SILVER [Concomitant]

REACTIONS (2)
  - PSYCHOMOTOR HYPERACTIVITY [None]
  - WEIGHT INCREASED [None]
